FAERS Safety Report 9841158 (Version 1)
Quarter: 2013Q4

REPORT INFORMATION
  Report Type: Spontaneous
  Country: US (occurrence: None)
  Receive Date: 20131223
  Receipt Date: 20131223
  Transmission Date: 20140711
  Serious: No
  Sender: FDA-Public Use
  Company Number: 217878LEO

PATIENT
  Sex: Female

DRUGS (1)
  1. PICATO GEL [Suspect]
     Indication: ACTINIC KERATOSIS
     Route: 061
     Dates: start: 20120530, end: 20120601

REACTIONS (5)
  - Drug administration error [None]
  - Application site erythema [None]
  - Application site dryness [None]
  - Overdose [None]
  - Incorrect drug administration duration [None]
